FAERS Safety Report 13530955 (Version 1)
Quarter: 2017Q2

REPORT INFORMATION
  Report Type: Spontaneous
  Country: US (occurrence: US)
  Receive Date: 20170509
  Receipt Date: 20170509
  Transmission Date: 20170830
  Serious: Yes (Hospitalization)
  Sender: FDA-Public Use
  Company Number: None

PATIENT
  Age: 66 Year
  Sex: Male

DRUGS (13)
  1. AFINITOR [Suspect]
     Active Substance: EVEROLIMUS
     Indication: METASTASES TO LIVER
     Route: 048
     Dates: start: 20110824
  2. NOVOLOG [Concomitant]
     Active Substance: INSULIN ASPART
  3. PRADAXA [Concomitant]
     Active Substance: DABIGATRAN ETEXILATE MESYLATE
  4. OMPERAZOLE [Concomitant]
     Active Substance: OMEPRAZOLE
  5. OXYCODONE [Concomitant]
     Active Substance: OXYCODONE
  6. B COMPL [Concomitant]
  7. PREDNISONE. [Concomitant]
     Active Substance: PREDNISONE
  8. ATIVAN [Concomitant]
     Active Substance: LORAZEPAM
  9. AMLODIPINE [Concomitant]
     Active Substance: AMLODIPINE BESYLATE
  10. OCTREOTIDE. [Concomitant]
     Active Substance: OCTREOTIDE
  11. CLEEBREX [Concomitant]
  12. CREON [Concomitant]
     Active Substance: PANCRELIPASE AMYLASE\PANCRELIPASE LIPASE\PANCRELIPASE PROTEASE
  13. CALCITRIOL. [Concomitant]
     Active Substance: CALCITRIOL

REACTIONS (1)
  - Localised infection [None]

NARRATIVE: CASE EVENT DATE: 20170501
